FAERS Safety Report 5673748-9 (Version None)
Quarter: 2008Q1

REPORT INFORMATION
  Report Type: 
  Country: None (occurrence: None)
  Receive Date: 20080319
  Receipt Date: 20080307
  Transmission Date: 20080703
  Serious: Yes (Other)
  Sender: FDA-Public Use
  Company Number: US-PFIZER INC-2008004519

PATIENT
  Sex: Female
  Weight: 43.181 kg

DRUGS (5)
  1. LYRICA [Suspect]
     Indication: FIBROMYALGIA
  2. XANAX [Concomitant]
  3. CLONAZEPAM [Concomitant]
  4. ANALGESICS [Concomitant]
  5. TRAMADOL HCL [Concomitant]

REACTIONS (9)
  - CONTUSION [None]
  - DISORIENTATION [None]
  - DIZZINESS [None]
  - DRUG INTERACTION [None]
  - FALL [None]
  - GAIT DISTURBANCE [None]
  - PAIN [None]
  - THINKING ABNORMAL [None]
  - VISION BLURRED [None]
